FAERS Safety Report 8055061-8 (Version None)
Quarter: 2012Q1

REPORT INFORMATION
  Report Type: 
  Country: None (occurrence: None)
  Receive Date: 20120119
  Receipt Date: 20120113
  Transmission Date: 20120608
  Serious: Yes (Life-Threatening, Hospitalization)
  Sender: FDA-Public Use
  Company Number: FR-PFIZER INC-2012003116

PATIENT
  Age: 67 Year
  Sex: Female

DRUGS (15)
  1. PANTOPRAZOLE [Suspect]
     Dosage: 20 MG, UNK
     Route: 048
     Dates: start: 20111117, end: 20111214
  2. DEBRIDAT [Suspect]
     Dosage: UNK
     Route: 042
     Dates: start: 20111117, end: 20111202
  3. ATARAX [Suspect]
     Dosage: 25 MG, UNK
     Route: 048
     Dates: start: 20111125, end: 20111129
  4. FLUCONAZOLE [Suspect]
     Dosage: 100 MG, 2X/DAY
     Route: 042
     Dates: start: 20111117, end: 20111215
  5. DUPHALAC [Suspect]
     Dosage: UNK
     Route: 048
     Dates: end: 20111215
  6. VANCOMYCIN HYDROCHLORIDE [Suspect]
     Dosage: UNK
     Route: 042
     Dates: start: 20111121, end: 20111127
  7. LEXOMIL [Suspect]
     Dosage: UNK
     Route: 048
     Dates: start: 20111130, end: 20111204
  8. LEVOTHYROXINE SODIUM [Suspect]
     Dosage: 20 DF, UNK
     Route: 048
     Dates: start: 20111129
  9. ACETAMINOPHEN [Suspect]
     Dosage: 3 G, UNK
     Route: 048
     Dates: start: 20111130, end: 20111215
  10. IMIPENEM [Suspect]
     Dosage: 1000 MG, UNK
     Route: 042
     Dates: start: 20111111, end: 20111214
  11. ACETAMINOPHEN [Suspect]
     Dosage: 4 G, UNK
     Route: 042
     Dates: start: 20111125, end: 20111201
  12. ASPEGIC 325 [Suspect]
     Dosage: 100 MG, UNK
     Route: 048
  13. HEPARIN CALCIUM [Suspect]
     Dosage: 0.4 ML (10000 UI/0.4ML)
     Route: 058
     Dates: start: 20111126
  14. XANAX [Suspect]
     Dosage: 0.25 MG, UNK
     Route: 048
     Dates: start: 20111205, end: 20111214
  15. ASPEGIC 325 [Suspect]
     Dosage: 250 MG, UNK
     Route: 048
     Dates: start: 20111125

REACTIONS (1)
  - AGRANULOCYTOSIS [None]
